FAERS Safety Report 6550684-7 (Version None)
Quarter: 2010Q1

REPORT INFORMATION
  Report Type: 
  Country: None (occurrence: None)
  Receive Date: 20100125
  Receipt Date: 20090923
  Transmission Date: 20100710
  Serious: No
  Sender: FDA-Public Use
  Company Number: US-TYCO HEALTHCARE/MALLINCKRODT-T200901840

PATIENT

DRUGS (1)
  1. OPTIRAY 350 [Suspect]
     Dosage: UNK
     Dates: start: 20090101, end: 20090101

REACTIONS (1)
  - ACCIDENTAL EXPOSURE [None]
